FAERS Safety Report 12091650 (Version 6)
Quarter: 2016Q3

REPORT INFORMATION
  Report Type: Spontaneous
  Country: US (occurrence: US)
  Receive Date: 20160218
  Receipt Date: 20160916
  Transmission Date: 20161109
  Serious: Yes (Hospitalization, Other)
  Sender: FDA-Public Use
  Company Number: US-GILEAD-2016-0198792

PATIENT
  Age: 5 Year
  Sex: Male

DRUGS (12)
  1. FLOLAN [Suspect]
     Active Substance: EPOPROSTENOL SODIUM
     Dosage: 190 NG/KG/MIN, 1.5 MG VIAL STRENGTH, 60,000 NG/ML CONCENTRATION, 93 ML/DAY RATE
     Route: 042
     Dates: start: 20121003
  2. FLOLAN [Suspect]
     Active Substance: EPOPROSTENOL SODIUM
     Indication: PULMONARY ARTERIAL HYPERTENSION
     Dosage: UNK UNK, CO
     Route: 065
  3. TRACLEER [Concomitant]
     Active Substance: BOSENTAN
  4. FLOLAN [Suspect]
     Active Substance: EPOPROSTENOL SODIUM
     Dosage: UNK
  5. FLOLAN [Suspect]
     Active Substance: EPOPROSTENOL SODIUM
     Dosage: 162NG/KG/MIN, 1.5MG VIAL STR, 60,000NG/ML CONC, 80 ML/DAY RATE
     Route: 042
  6. FLOLAN [Suspect]
     Active Substance: EPOPROSTENOL SODIUM
     Dosage: 180 NG/KG/MIN , CO
     Route: 042
  7. FLOLAN [Suspect]
     Active Substance: EPOPROSTENOL SODIUM
     Dosage: 174 DF (CONCENTRATION 60,000 NG/ML, PUMP RATE 86 ML/DAY, VIAL STRENGTH 1.5 MG), UNK
     Route: 042
  8. SILDENAFIL. [Concomitant]
     Active Substance: SILDENAFIL
  9. AMBRISENTAN [Suspect]
     Active Substance: AMBRISENTAN
     Indication: PRODUCT USED FOR UNKNOWN INDICATION
     Dosage: UNK
     Route: 065
  10. FLOLAN [Suspect]
     Active Substance: EPOPROSTENOL SODIUM
     Indication: PULMONARY ARTERIAL HYPERTENSION
     Dosage: CONCENTRATION: 45,000 NG/MLPUMP RATE: 74 ML/DAYVIAL STRENGTH: 1.5 MG140 NG/KG/ MIN45000 NG/MLVI[...]
     Route: 065
     Dates: start: 20080718
  11. FLOLAN [Suspect]
     Active Substance: EPOPROSTENOL SODIUM
     Dosage: UNK
  12. REVATIO [Concomitant]
     Active Substance: SILDENAFIL CITRATE
     Dosage: UNK

REACTIONS (15)
  - Infusion site infection [Recovered/Resolved with Sequelae]
  - Haemoglobin decreased [Unknown]
  - Catheterisation cardiac [Unknown]
  - Malaise [Unknown]
  - Headache [Unknown]
  - Sinusitis [Unknown]
  - Haemorrhage [Unknown]
  - Device issue [Unknown]
  - Device related infection [Unknown]
  - Sinus congestion [Unknown]
  - Cerebrovascular accident [Unknown]
  - Colonoscopy [Unknown]
  - Catheter site erythema [Unknown]
  - Central venous catheterisation [Unknown]
  - Off label use [Not Recovered/Not Resolved]

NARRATIVE: CASE EVENT DATE: 20151005
